FAERS Safety Report 20484454 (Version 1)
Quarter: 2022Q1

REPORT INFORMATION
  Report Type: Spontaneous
  Country: ES (occurrence: ES)
  Receive Date: 20220217
  Receipt Date: 20220217
  Transmission Date: 20220423
  Serious: Yes (Other)
  Sender: FDA-Public Use
  Company Number: ES-PFIZER INC-202200215992

PATIENT
  Age: 76 Year
  Sex: Female

DRUGS (5)
  1. PALBOCICLIB [Suspect]
     Active Substance: PALBOCICLIB
     Dosage: 125 MG, DAILY
     Dates: start: 20200520
  2. PALBOCICLIB [Suspect]
     Active Substance: PALBOCICLIB
     Dosage: 100 MG, DAILY, SINCE 4TH CYCLE
  3. PALBOCICLIB [Suspect]
     Active Substance: PALBOCICLIB
     Dosage: 75 MG, DAILY, SINCE CYCLE 10
     Dates: start: 202104
  4. FASLODEX [Suspect]
     Active Substance: FULVESTRANT
     Dosage: 500 MG, MONTHLY
     Route: 030
     Dates: start: 20200320
  5. CYMBALTA [Concomitant]
     Active Substance: DULOXETINE HYDROCHLORIDE
     Dosage: 1 DF, 1X/DAY (AT LUNCH)

REACTIONS (6)
  - Neutropenia [Unknown]
  - Cellulite [Recovered/Resolved]
  - Deep vein thrombosis [Recovered/Resolved]
  - Lymphoedema [Recovered/Resolved]
  - Condition aggravated [Recovered/Resolved]
  - COVID-19 [Recovered/Resolved]

NARRATIVE: CASE EVENT DATE: 20201101
